FAERS Safety Report 11483742 (Version 1)
Quarter: 2015Q3

REPORT INFORMATION
  Report Type: Spontaneous
  Country: US (occurrence: US)
  Receive Date: 20150903
  Receipt Date: 20150903
  Transmission Date: 20151125
  Serious: Yes (Other)
  Sender: FDA-Public Use
  Company Number: US-ELI_LILLY_AND_COMPANY-US201207007305

PATIENT
  Age: 67 Year
  Sex: Female

DRUGS (2)
  1. CYMBALTA [Suspect]
     Active Substance: DULOXETINE HYDROCHLORIDE
     Indication: FIBROMYALGIA
     Dosage: 60MG, Q AM
     Route: 048
     Dates: start: 201206
  2. CYMBALTA [Suspect]
     Active Substance: DULOXETINE HYDROCHLORIDE
     Dosage: 30MG,Q PM
     Route: 048
     Dates: start: 201206

REACTIONS (6)
  - Suicidal ideation [Unknown]
  - Malabsorption [Unknown]
  - Drug ineffective [Unknown]
  - Fatigue [Unknown]
  - Pain [Unknown]
  - Herpes zoster [Unknown]
